FAERS Safety Report 4509185-X (Version None)
Quarter: 2004Q4

REPORT INFORMATION
  Report Type: 
  Country: None (occurrence: None)
  Receive Date: 20041123
  Receipt Date: 20040415
  Transmission Date: 20050328
  Serious: Yes (Hospitalization)
  Sender: FDA-Public Use
  Company Number: FR-MERCK-0404FRA00057

PATIENT
  Age: 35 Year
  Sex: Female

DRUGS (5)
  1. NOROXIN [Suspect]
     Indication: URINARY TRACT INFECTION
     Route: 048
     Dates: start: 20040316, end: 20040325
  2. CABERGOLINE [Concomitant]
     Indication: HYPERPROLACTINAEMIA
     Route: 048
     Dates: end: 20040422
  3. ZOLMITRIPTAN [Concomitant]
     Indication: MIGRAINE
     Route: 048
     Dates: end: 20040409
  4. ACETAMINOPHEN [Concomitant]
     Indication: MIGRAINE
     Route: 048
     Dates: end: 20040409
  5. BROMOCRIPTINE MESYLATE [Concomitant]
     Indication: HYPERPROLACTINAEMIA
     Route: 048
     Dates: start: 20040423

REACTIONS (3)
  - DRUG EXPOSURE DURING PREGNANCY [None]
  - GESTATIONAL DIABETES [None]
  - PROLONGED PREGNANCY [None]
